FAERS Safety Report 7679348-3 (Version None)
Quarter: 2011Q3

REPORT INFORMATION
  Report Type: 
  Country: None (occurrence: None)
  Receive Date: 20110812
  Receipt Date: 20110810
  Transmission Date: 20111222
  Serious: Yes (Death)
  Sender: FDA-Public Use
  Company Number: PHHY2011KR71999

PATIENT
  Sex: Female
  Weight: 17 kg

DRUGS (5)
  1. EXJADE [Suspect]
     Dosage: 500 MG, DAILY
     Dates: start: 20100509, end: 20100530
  2. EXJADE [Suspect]
     Indication: IRON OVERLOAD
     Dosage: 375 MG, DAILY
     Dates: start: 20100404
  3. EXJADE [Suspect]
     Dosage: 375 MG, DAILY
     Dates: start: 20100531, end: 20100602
  4. EXJADE [Suspect]
     Dosage: 250 MG, DAILY
     Dates: start: 20100405, end: 20100508
  5. EXJADE [Suspect]
     Dosage: 400 MG, DAILY
     Dates: start: 20100603, end: 20101102

REACTIONS (1)
  - DEATH [None]
